FAERS Safety Report 7093374-7 (Version None)
Quarter: 2010Q4

REPORT INFORMATION
  Report Type: 
  Country: None (occurrence: None)
  Receive Date: 20101018
  Receipt Date: 20100805
  Transmission Date: 20110411
  Serious: Yes (Hospitalization, Other)
  Sender: FDA-Public Use
  Company Number: HQWYE988021OCT04

PATIENT
  Age: 61 Year
  Sex: Female

DRUGS (5)
  1. PREMARIN [Suspect]
  2. CYCRIN [Suspect]
  3. MEDROXYPROGESTERONE ACETATE [Suspect]
  4. PROVERA [Suspect]
  5. PROGESTERONE [Concomitant]

REACTIONS (1)
  - BREAST CANCER [None]
